FAERS Safety Report 18709650 (Version 3)
Quarter: 2021Q3

REPORT INFORMATION
  Report Type: Report from Study
  Country: CA (occurrence: CA)
  Receive Date: 20210106
  Receipt Date: 20210903
  Transmission Date: 20211014
  Serious: Yes (Other)
  Sender: FDA-Public Use
  Company Number: CA-SHIRE-CA201927149AA

PATIENT
  Age: 57 Year
  Sex: Female

DRUGS (4)
  1. GAMMAGARD [Concomitant]
     Active Substance: HUMAN IMMUNOGLOBULIN G
     Indication: PRODUCT USED FOR UNKNOWN INDICATION
     Dosage: UNK
     Route: 042
     Dates: start: 20050101, end: 20120102
  2. CUVITRU [Suspect]
     Active Substance: HUMAN IMMUNOGLOBULIN G
     Indication: PRIMARY IMMUNODEFICIENCY SYNDROME
     Dosage: 12 GRAM, 1X/WEEK
     Route: 058
     Dates: start: 20180404
  3. LEFLUNOMIDE. [Concomitant]
     Active Substance: LEFLUNOMIDE
     Indication: PRODUCT USED FOR UNKNOWN INDICATION
     Dosage: UNK
     Route: 065
  4. HIZENTRA [Concomitant]
     Active Substance: HUMAN IMMUNOGLOBULIN G
     Indication: PRODUCT USED FOR UNKNOWN INDICATION
     Dosage: UNK
     Route: 065
     Dates: start: 20120101, end: 20190501

REACTIONS (9)
  - Migraine [Unknown]
  - Disorientation [Unknown]
  - Bronchitis [Unknown]
  - Condition aggravated [Unknown]
  - Injection site haemorrhage [Unknown]
  - Infection [Unknown]
  - Pneumonia [Unknown]
  - Increased tendency to bruise [Unknown]
  - C-reactive protein increased [Unknown]
